FAERS Safety Report 7938022-6 (Version None)
Quarter: 2011Q4

REPORT INFORMATION
  Report Type: 
  Country: None (occurrence: None)
  Receive Date: 20111123
  Receipt Date: 20111117
  Transmission Date: 20120403
  Serious: Yes (Hospitalization)
  Sender: FDA-Public Use
  Company Number: US-US-EMD SERONO, INC.-7033228

PATIENT
  Sex: Female

DRUGS (7)
  1. ADDERALL 5 [Concomitant]
     Indication: NARCOLEPSY
  2. REBIF [Suspect]
     Indication: MULTIPLE SCLEROSIS
     Route: 058
     Dates: start: 20100211
  3. STEROIDS [Suspect]
     Indication: MULTIPLE SCLEROSIS RELAPSE
     Route: 042
     Dates: start: 20091101
  4. UNSPECIFIED BLOOD THINNER [Concomitant]
  5. STEROIDS [Suspect]
     Route: 042
     Dates: start: 20100101
  6. SYNTHROID [Concomitant]
     Indication: HYPOTHYROIDISM
  7. BENTYL [Concomitant]
     Indication: IRRITABLE BOWEL SYNDROME

REACTIONS (7)
  - INFLUENZA LIKE ILLNESS [None]
  - HEART RATE INCREASED [None]
  - PYREXIA [None]
  - INJECTION SITE ERYTHEMA [None]
  - HEPATIC ENZYME INCREASED [None]
  - OSTEONECROSIS [None]
  - BLOOD PRESSURE FLUCTUATION [None]
